FAERS Safety Report 6547170-7 (Version None)
Quarter: 2010Q1

REPORT INFORMATION
  Report Type: 
  Country: None (occurrence: None)
  Receive Date: 20100122
  Receipt Date: 20100113
  Transmission Date: 20100710
  Serious: Yes (Other)
  Sender: FDA-Public Use
  Company Number: GXKR2008NZ02549

PATIENT
  Age: 70 Year
  Sex: Female

DRUGS (3)
  1. HYDROCHLOROTHIAZIDE [Suspect]
     Route: 065
  2. ESTROGEN NOS [Concomitant]
     Route: 065
  3. ACETYLSALICYLIC ACID [Concomitant]
     Route: 065

REACTIONS (3)
  - ANGLE CLOSURE GLAUCOMA [None]
  - IRIDOTOMY [None]
  - VISUAL ACUITY REDUCED [None]
